FAERS Safety Report 10681675 (Version 2)
Quarter: 2015Q1

REPORT INFORMATION
  Report Type: Report from Study
  Country: JP (occurrence: None)
  Receive Date: 20141224
  Receipt Date: 20150205
  Transmission Date: 20150720
  Serious: Yes (Hospitalization)
  Sender: FDA-Public Use
  Company Number: 2014FE03244

PATIENT
  Age: 79 Year
  Sex: Male
  Weight: 62 kg

DRUGS (11)
  1. HARNAL (TAMSULOSIN HYDROCHLORIDE) [Concomitant]
  2. GASTROM (ECABET MONOSODIUM) [Concomitant]
  3. CISDYNE (CARBOCISTEINE [Concomitant]
  4. URSO  (URSODEOXYCHOLIC ACID) [Concomitant]
  5. AMLODIPINE [Concomitant]
     Active Substance: AMLODIPINE BESYLATE
  6. JUVELA N (TOCOPHERYL NICOTINATE) [Concomitant]
  7. DENOSUMAB (DENOSUMAB) [Concomitant]
  8. ALINAMIN F (FURSULTIAMINE HYDROCHLORIDE) [Concomitant]
  9. SANCOBA (CYANOCOBALAMIN) [Concomitant]
  10. BRONUCK (BROMFENAC SODIUM) [Concomitant]
  11. DEGARELIX (DEGARELIX) POWDER AND SOLVENT FOR SOLUTION FOR INJECTION [Suspect]
     Active Substance: DEGARELIX
     Indication: PROSTATE CANCER
     Route: 058
     Dates: start: 20140409, end: 20140409

REACTIONS (4)
  - Gallbladder cancer [None]
  - Cholangitis [None]
  - Hepatic neoplasm [None]
  - Gallbladder neoplasm [None]

NARRATIVE: CASE EVENT DATE: 20141030
